FAERS Safety Report 8520499-9 (Version None)
Quarter: 2012Q3

REPORT INFORMATION
  Report Type: 
  Country: None (occurrence: None)
  Receive Date: 20120713
  Receipt Date: 20120713
  Transmission Date: 20120928
  Serious: Yes (Life-Threatening, Hospitalization)
  Sender: FDA-Public Use
  Company Number: None

PATIENT
  Age: 67 Year
  Sex: Male
  Weight: 73.4 kg

DRUGS (1)
  1. IMMUNE GLOBULIN (HUMAN) [Suspect]
     Indication: CHRONIC INFLAMMATORY DEMYELINATING POLYRADICULONEUROPATHY
     Dosage: 30 MG ONCE IV
     Route: 042
     Dates: start: 20120214, end: 20120225

REACTIONS (5)
  - CARDIAC FAILURE CONGESTIVE [None]
  - HYPOTENSION [None]
  - TACHYCARDIA [None]
  - FLUID OVERLOAD [None]
  - OXYGEN SATURATION DECREASED [None]
